FAERS Safety Report 5874162-3 (Version None)
Quarter: 2008Q3

REPORT INFORMATION
  Report Type: 
  Country: None (occurrence: None)
  Receive Date: 20080829
  Receipt Date: 20080821
  Transmission Date: 20090109
  Serious: Yes (Other)
  Sender: FDA-Public Use
  Company Number: 20023

PATIENT
  Age: 55 Year
  Sex: Male

DRUGS (4)
  1. VINCRISTINE [Suspect]
     Indication: PARANEOPLASTIC PEMPHIGUS
  2. DOXORUBICIN HCL [Suspect]
     Indication: PARANEOPLASTIC PEMPHIGUS
  3. PREDNISONE TAB [Suspect]
     Indication: PARANEOPLASTIC PEMPHIGUS
  4. CYCLOPHOSPHAMIDE [Suspect]
     Indication: PARANEOPLASTIC PEMPHIGUS

REACTIONS (3)
  - AGRANULOCYTOSIS [None]
  - RESPIRATORY DISTRESS [None]
  - RESPIRATORY TRACT INFECTION [None]
